FAERS Safety Report 7333159-7 (Version None)
Quarter: 2011Q1

REPORT INFORMATION
  Report Type: 
  Country: None (occurrence: None)
  Receive Date: 20110304
  Receipt Date: 20110223
  Transmission Date: 20110831
  Serious: Yes (Other)
  Sender: FDA-Public Use
  Company Number: US-ASTRAZENECA-2011SE10356

PATIENT
  Age: 34 Year
  Sex: Male
  Weight: 90.7 kg

DRUGS (9)
  1. APLENZIN [Concomitant]
  2. ZANAFLEX [Concomitant]
  3. SEROQUEL XR [Suspect]
     Indication: BIPOLAR DISORDER
     Route: 048
     Dates: start: 20101101
  4. LORTAB [Concomitant]
  5. KLONOPIN [Concomitant]
  6. DEPAKOTE [Concomitant]
  7. SEROQUEL XR [Suspect]
     Indication: MAJOR DEPRESSION
     Route: 048
     Dates: start: 20101101
  8. SEROQUEL XR [Suspect]
     Indication: POST-TRAUMATIC STRESS DISORDER
     Route: 048
     Dates: start: 20101101
  9. SEROQUEL XR [Suspect]
     Indication: ANXIETY
     Route: 048
     Dates: start: 20101101

REACTIONS (1)
  - LOSS OF CONSCIOUSNESS [None]
